FAERS Safety Report 4677730-X (Version None)
Quarter: 2005Q2

REPORT INFORMATION
  Report Type: 
  Country: None (occurrence: None)
  Receive Date: 20050527
  Receipt Date: 20050516
  Transmission Date: 20051028
  Serious: Yes (Hospitalization, Other)
  Sender: FDA-Public Use
  Company Number: HQWYE079307MAY03

PATIENT
  Age: 73 Year
  Sex: Female

DRUGS (6)
  1. AMIODARONE HCL [Suspect]
     Indication: ATRIAL FIBRILLATION
     Dosage: 200 MG 1X PER 1 DAY
  2. AMIODARONE HCL [Suspect]
     Indication: VENTRICULAR TACHYCARDIA
     Dosage: 200 MG 1X PER 1 DAY
  3. LORATADINE [Suspect]
     Indication: HYPERSENSITIVITY
     Dosage: 10 MG 1X PER 1 DAY
  4. CILAZAPRIL (CILAZAPRIL) [Concomitant]
  5. PRAVASTATIN [Concomitant]
  6. WARFARIN SODIUM [Concomitant]

REACTIONS (10)
  - DIASTOLIC DYSFUNCTION [None]
  - DRUG INTERACTION [None]
  - ELECTROCARDIOGRAM QT CORRECTED INTERVAL PROLONGED [None]
  - ELECTROCARDIOGRAM QT PROLONGED [None]
  - QRS AXIS ABNORMAL [None]
  - SINUS BRADYCARDIA [None]
  - SYNCOPE [None]
  - TORSADE DE POINTES [None]
  - VENTRICULAR EXTRASYSTOLES [None]
  - VENTRICULAR HYPERTROPHY [None]
